FAERS Safety Report 23862698 (Version 1)
Quarter: 2024Q2

REPORT INFORMATION
  Report Type: Spontaneous
  Country: US (occurrence: None)
  Receive Date: 20240515
  Receipt Date: 20240515
  Transmission Date: 20240716
  Serious: Yes (unspecified)
  Sender: FDA-Public Use
  Company Number: None

PATIENT
  Age: 52 Year
  Sex: Female
  Weight: 76.5 kg

DRUGS (6)
  1. TEZSPIRE [Suspect]
     Active Substance: TEZEPELUMAB-EKKO
     Indication: Asthma
     Dosage: FREQUENCY : MONTHLY;?
     Route: 058
     Dates: end: 20240501
  2. ADVAIR HFA [Concomitant]
     Active Substance: FLUTICASONE PROPIONATE\SALMETEROL XINAFOATE
  3. incruise [Concomitant]
  4. amlodapine [Concomitant]
  5. metrpopol [Concomitant]
  6. ATIVAN [Concomitant]
     Active Substance: LORAZEPAM

REACTIONS (3)
  - Arthralgia [None]
  - Musculoskeletal stiffness [None]
  - Drug ineffective [None]

NARRATIVE: CASE EVENT DATE: 20240101
